FAERS Safety Report 23529989 (Version 1)
Quarter: 2024Q1

REPORT INFORMATION
  Report Type: Spontaneous
  Country: US (occurrence: US)
  Receive Date: 20240216
  Receipt Date: 20240216
  Transmission Date: 20240409
  Serious: Yes (Hospitalization, Other)
  Sender: FDA-Public Use
  Company Number: US-SPECGX-T202301977

PATIENT
  Age: 55 Year
  Sex: Male
  Weight: 109 kg

DRUGS (4)
  1. ACETAMINOPHEN AND CODEINE [Suspect]
     Active Substance: ACETAMINOPHEN\CODEINE PHOSPHATE
     Indication: Product used for unknown indication
     Dosage: 5-15 TABLETS
     Route: 065
  2. ALPRAZOLAM [Suspect]
     Active Substance: ALPRAZOLAM
     Indication: Product used for unknown indication
     Dosage: 60 MILLIGRAM (TOOK 30 ALPRAZOLAM 2 MG TABLETS)
     Route: 065
  3. LORAZEPAM [Suspect]
     Active Substance: LORAZEPAM
     Indication: Product used for unknown indication
     Dosage: 26 MILLIGRAM (TOOK 26 LORAZEPAM 1 MG TABLETS)
     Route: 065
  4. TRAMADOL [Suspect]
     Active Substance: TRAMADOL\TRAMADOL HYDROCHLORIDE
     Indication: Product used for unknown indication
     Dosage: 50 MILLIGRAM (TOOK 5-15 TABLETS)
     Route: 065

REACTIONS (10)
  - Suicide attempt [Unknown]
  - PCO2 increased [Unknown]
  - Blood bicarbonate increased [Unknown]
  - Hypokalaemia [Unknown]
  - Blood chloride decreased [Unknown]
  - Hypertension [Unknown]
  - Hypoglycaemia [Recovered/Resolved]
  - Somnolence [Unknown]
  - Overdose [Unknown]
  - Suicidal ideation [Unknown]
